FAERS Safety Report 15338831 (Version 1)
Quarter: 2018Q3

REPORT INFORMATION
  Report Type: Spontaneous
  Country: CN (occurrence: CN)
  Receive Date: 20180831
  Receipt Date: 20180831
  Transmission Date: 20181010
  Serious: Yes (Death)
  Sender: FDA-Public Use
  Company Number: CN-BAYER-2018-163409

PATIENT
  Age: 61 Year
  Sex: Male
  Weight: 90 kg

DRUGS (6)
  1. LIPITOR [Concomitant]
     Active Substance: ATORVASTATIN CALCIUM
     Indication: ACUTE MYOCARDIAL INFARCTION
     Dosage: 40 MG, QD
     Route: 048
     Dates: start: 20180705, end: 20180709
  2. BAYASPIRIN 100 MG [Suspect]
     Active Substance: ASPIRIN
     Indication: ACUTE MYOCARDIAL INFARCTION
     Dosage: 300 MG, QD
     Route: 048
     Dates: start: 20180705, end: 20180709
  3. RETEPLASE [Concomitant]
     Active Substance: RETEPLASE
     Indication: ACUTE MYOCARDIAL INFARCTION
     Dosage: 36 MG, BID
     Route: 042
     Dates: start: 20180705, end: 20180705
  4. PLAVIX [Suspect]
     Active Substance: CLOPIDOGREL BISULFATE
     Indication: ACUTE MYOCARDIAL INFARCTION
     Dosage: 75 MG, QD
     Route: 048
     Dates: start: 20180705, end: 20180709
  5. PANTOPRAZOLE SODIUM. [Concomitant]
     Active Substance: PANTOPRAZOLE SODIUM
     Indication: ACUTE MYOCARDIAL INFARCTION
     Dosage: 80 MG, QD
     Route: 041
     Dates: start: 20180705, end: 20180709
  6. ENOXAPARIN SODIUM. [Suspect]
     Active Substance: ENOXAPARIN SODIUM
     Indication: ACUTE MYOCARDIAL INFARCTION
     Dosage: 6000 IU, BID
     Route: 058
     Dates: start: 20180705, end: 20180709

REACTIONS (1)
  - Cerebral haemorrhage [Fatal]

NARRATIVE: CASE EVENT DATE: 20180710
